FAERS Safety Report 12897616 (Version 1)
Quarter: 2016Q4

REPORT INFORMATION
  Report Type: Spontaneous
  Country: ES (occurrence: ES)
  Receive Date: 20161031
  Receipt Date: 20161031
  Transmission Date: 20170207
  Serious: Yes (Other)
  Sender: FDA-Public Use
  Company Number: ES-ENDO PHARMACEUTICALS INC.-2016-006510

PATIENT
  Age: 34 Year
  Sex: Male

DRUGS (1)
  1. TESTIM [Suspect]
     Active Substance: TESTOSTERONE
     Indication: ANDROGEN DEFICIENCY
     Route: 003
     Dates: start: 2014, end: 20161008

REACTIONS (6)
  - Erythema [Unknown]
  - Tongue biting [Unknown]
  - Underdose [Recovered/Resolved]
  - Headache [Unknown]
  - Burning sensation [Unknown]
  - Epilepsy [Recovered/Resolved]

NARRATIVE: CASE EVENT DATE: 2014
